FAERS Safety Report 4611311-9 (Version None)
Quarter: 2005Q2

REPORT INFORMATION
  Report Type: 
  Country: None (occurrence: None)
  Receive Date: 20050311
  Receipt Date: 20041207
  Transmission Date: 20051028
  Serious: No
  Sender: FDA-Public Use
  Company Number: 2004-BP-13452BP

PATIENT
  Sex: Male

DRUGS (9)
  1. SPIRIVA [Suspect]
     Indication: CHRONIC OBSTRUCTIVE PULMONARY DISEASE
     Dosage: 18 MCG (18 MCG), IH
     Route: 055
     Dates: start: 20041001, end: 20041001
  2. SPIRIVA [Suspect]
     Indication: EMPHYSEMA
     Dosage: 18 MCG (18 MCG), IH
     Route: 055
     Dates: start: 20041001, end: 20041001
  3. ALBUTEROL [Concomitant]
  4. COMBIVENT [Concomitant]
  5. BENZAPRIL HCL [Concomitant]
  6. FLOMAX [Concomitant]
  7. ASPIRIN [Concomitant]
  8. OXYGEN (OXYGEN) [Concomitant]
  9. ................ [Concomitant]

REACTIONS (1)
  - DRUG INEFFECTIVE [None]
